FAERS Safety Report 17192182 (Version 1)
Quarter: 2019Q4

REPORT INFORMATION
  Report Type: Report from Study
  Country: IT (occurrence: IT)
  Receive Date: 20191223
  Receipt Date: 20191223
  Transmission Date: 20200122
  Serious: Yes (Other)
  Sender: FDA-Public Use
  Company Number: IT-PFIZER INC-2019547396

PATIENT
  Age: 47 Year
  Sex: Female
  Weight: 86 kg

DRUGS (5)
  1. DOXORUBICIN HCL [Suspect]
     Active Substance: DOXORUBICIN HYDROCHLORIDE
     Indication: UTERINE LEIOMYOSARCOMA
     Dosage: 135 MG, CYCLIC
     Route: 042
     Dates: start: 20191106
  2. EMEND [Concomitant]
     Active Substance: APREPITANT
     Dosage: 125 MG, UNK
  3. GRANISETRON HYDROCHLORIDE. [Concomitant]
     Active Substance: GRANISETRON HYDROCHLORIDE
     Dosage: 2 MG, UNK
  4. DACARBAZINA MEDAC [Suspect]
     Active Substance: DACARBAZINE
     Indication: UTERINE LEIOMYOSARCOMA
     Dosage: 720 MG, CYCLIC
     Route: 042
     Dates: start: 20191106
  5. OMEPRAZOLE SODIUM [Concomitant]
     Active Substance: OMEPRAZOLE SODIUM
     Dosage: 20 MG, UNK

REACTIONS (2)
  - Nausea [Recovering/Resolving]
  - Dysphagia [Recovering/Resolving]

NARRATIVE: CASE EVENT DATE: 20191113
